FAERS Safety Report 12544890 (Version 1)
Quarter: 2016Q3

REPORT INFORMATION
  Report Type: Spontaneous
  Country: US (occurrence: US)
  Receive Date: 20160711
  Receipt Date: 20160711
  Transmission Date: 20161109
  Serious: No
  Sender: FDA-Public Use
  Company Number: US-BAYER-2016-131552

PATIENT
  Age: 38 Year
  Sex: Female

DRUGS (2)
  1. MIRENA [Suspect]
     Active Substance: LEVONORGESTREL
     Indication: CONTRACEPTION
     Dosage: 20 MCG/24HR, CONT
     Route: 015
     Dates: start: 20160624
  2. MIRENA [Suspect]
     Active Substance: LEVONORGESTREL
     Indication: MENORRHAGIA

REACTIONS (8)
  - Lip swelling [None]
  - Fatigue [None]
  - Eye swelling [None]
  - Fungal skin infection [None]
  - Peripheral swelling [None]
  - Mouth swelling [None]
  - Candida infection [None]
  - Swollen tongue [None]

NARRATIVE: CASE EVENT DATE: 20160624
